FAERS Safety Report 19759108 (Version 3)
Quarter: 2021Q4

REPORT INFORMATION
  Report Type: Spontaneous
  Country: US (occurrence: US)
  Receive Date: 20210827
  Receipt Date: 20211230
  Transmission Date: 20220303
  Serious: Yes (Hospitalization, Other)
  Sender: FDA-Public Use
  Company Number: US-PFIZER INC-2021702562

PATIENT
  Age: 86 Year
  Sex: Male
  Weight: 80.272 kg

DRUGS (5)
  1. VYNDAMAX [Suspect]
     Active Substance: TAFAMIDIS
     Indication: Cardiac amyloidosis
     Dosage: 61 MG, DAILY
     Route: 048
     Dates: start: 20201117, end: 20210608
  2. VYNDAMAX [Suspect]
     Active Substance: TAFAMIDIS
     Indication: Amyloidosis senile
  3. LASIX [Concomitant]
     Active Substance: FUROSEMIDE
     Indication: Cardiac failure
     Dosage: UNK
  4. METOLAZONE [Concomitant]
     Active Substance: METOLAZONE
     Dosage: UNK
  5. SPIRONOLACTONE [Concomitant]
     Active Substance: SPIRONOLACTONE
     Dosage: UNK

REACTIONS (8)
  - Cardiac failure acute [Recovering/Resolving]
  - Peripheral swelling [Recovering/Resolving]
  - Mitral valve incompetence [Unknown]
  - Cardiac failure congestive [Unknown]
  - Chronic kidney disease [Unknown]
  - Left ventricular hypertrophy [Unknown]
  - Carotid bruit [Unknown]
  - Oedema peripheral [Unknown]
